FAERS Safety Report 7233343-7 (Version None)
Quarter: 2011Q1

REPORT INFORMATION
  Report Type: 
  Country: None (occurrence: None)
  Receive Date: 20110119
  Receipt Date: 20110107
  Transmission Date: 20110831
  Serious: Yes (Other)
  Sender: FDA-Public Use
  Company Number: PHHY2011GB01790

PATIENT
  Age: 65 Year
  Sex: Female

DRUGS (1)
  1. LANSOPRAZOLE [Suspect]
     Indication: GASTROOESOPHAGEAL REFLUX DISEASE
     Dosage: 30 MG

REACTIONS (5)
  - SKIN LESION [None]
  - ANTINUCLEAR ANTIBODY INCREASED [None]
  - RASH PRURITIC [None]
  - CUTANEOUS LUPUS ERYTHEMATOSUS [None]
  - RASH ERYTHEMATOUS [None]
